FAERS Safety Report 21554570 (Version 1)
Quarter: 2022Q4

REPORT INFORMATION
  Report Type: Spontaneous
  Country: DE (occurrence: DE)
  Receive Date: 20221104
  Receipt Date: 20221104
  Transmission Date: 20230112
  Serious: Yes (Other)
  Sender: FDA-Public Use
  Company Number: DE-TAKEDA-2021TEU004737

PATIENT
  Age: 51 Year
  Sex: Female

DRUGS (1)
  1. ENANTONE MONATS-DEPOT [Suspect]
     Active Substance: LEUPROLIDE ACETATE
     Indication: Endometriosis
     Dosage: 3.75 MILLIGRAM, Q4WEEKS
     Route: 065
     Dates: start: 2016

REACTIONS (6)
  - Drug dependence [Unknown]
  - Drug ineffective [Unknown]
  - Incorrect product administration duration [Unknown]
  - Product storage error [Unknown]
  - Inappropriate schedule of product administration [Unknown]
  - Cartilage injury [Not Recovered/Not Resolved]
